FAERS Safety Report 13519105 (Version 1)
Quarter: 2017Q2

REPORT INFORMATION
  Report Type: Spontaneous
  Country: US (occurrence: US)
  Receive Date: 20170505
  Receipt Date: 20170505
  Transmission Date: 20170830
  Serious: No
  Sender: FDA-Public Use
  Company Number: US-FRESENIUS MEDICAL CARE RENAL THERAPIES GROUP-FMC-1704-000526

PATIENT
  Sex: Male

DRUGS (1)
  1. PHOSLO [Suspect]
     Active Substance: CALCIUM ACETATE
     Indication: END STAGE RENAL DISEASE

REACTIONS (2)
  - Blood calcium increased [Recovered/Resolved]
  - Pruritus [Recovered/Resolved]
